FAERS Safety Report 14691444 (Version 3)
Quarter: 2019Q2

REPORT INFORMATION
  Report Type: Spontaneous
  Country: US (occurrence: US)
  Receive Date: 20180328
  Receipt Date: 20190501
  Transmission Date: 20190711
  Serious: Yes (Other)
  Sender: FDA-Public Use
  Company Number: US-ASTRAZENECA-2018SE37325

PATIENT
  Sex: Female

DRUGS (28)
  1. NEXIUM [Suspect]
     Active Substance: ESOMEPRAZOLE MAGNESIUM
     Route: 048
     Dates: start: 200201, end: 201606
  2. FLEXERIL [Concomitant]
     Active Substance: CYCLOBENZAPRINE HYDROCHLORIDE
  3. SYNTHROID [Concomitant]
     Active Substance: LEVOTHYROXINE SODIUM
  4. NEXIUM [Suspect]
     Active Substance: ESOMEPRAZOLE MAGNESIUM
     Route: 048
     Dates: start: 201010, end: 201110
  5. PREVACID [Suspect]
     Active Substance: LANSOPRAZOLE
     Route: 065
  6. GABAPENTIN. [Concomitant]
     Active Substance: GABAPENTIN
  7. LEVOTHYROXINE. [Concomitant]
     Active Substance: LEVOTHYROXINE
  8. METOPROLOL TARTRATE. [Concomitant]
     Active Substance: METOPROLOL TARTRATE
  9. ACIPHEX [Concomitant]
     Active Substance: RABEPRAZOLE SODIUM
  10. VOLTAREN [Concomitant]
     Active Substance: DICLOFENAC SODIUM
  11. ALPRAZOLAM. [Concomitant]
     Active Substance: ALPRAZOLAM
  12. PRILOSEC OTC [Suspect]
     Active Substance: OMEPRAZOLE MAGNESIUM
     Route: 048
  13. ASPIRIN. [Concomitant]
     Active Substance: ASPIRIN
  14. TIZANIDINE. [Concomitant]
     Active Substance: TIZANIDINE
  15. LEVOFLOXACIN. [Concomitant]
     Active Substance: LEVOFLOXACIN
  16. CYCLOBENZAPRINE. [Concomitant]
     Active Substance: CYCLOBENZAPRINE
  17. HYDROCODONE [Concomitant]
     Active Substance: HYDROCODONE
  18. ZANAFLEX [Concomitant]
     Active Substance: TIZANIDINE HYDROCHLORIDE
  19. ZOLOFT [Concomitant]
     Active Substance: SERTRALINE HYDROCHLORIDE
  20. NORCO [Concomitant]
     Active Substance: ACETAMINOPHEN\HYDROCODONE BITARTRATE
  21. NEXIUM 24HR [Suspect]
     Active Substance: ESOMEPRAZOLE MAGNESIUM
     Route: 048
  22. CLOPIDOGREL [Concomitant]
     Active Substance: CLOPIDOGREL BISULFATE
  23. FLUTICASONE. [Concomitant]
     Active Substance: FLUTICASONE
  24. TORADOL [Concomitant]
     Active Substance: KETOROLAC TROMETHAMINE
  25. NEXIUM [Suspect]
     Active Substance: ESOMEPRAZOLE MAGNESIUM
     Route: 048
     Dates: start: 20101025, end: 20111008
  26. NEXIUM [Suspect]
     Active Substance: ESOMEPRAZOLE MAGNESIUM
     Route: 048
  27. PRILOSEC [Suspect]
     Active Substance: OMEPRAZOLE MAGNESIUM
     Route: 048
  28. PREVACID 24 HR [Suspect]
     Active Substance: LANSOPRAZOLE
     Route: 065

REACTIONS (4)
  - End stage renal disease [Unknown]
  - Renal failure [Unknown]
  - Chronic kidney disease [Unknown]
  - Renal injury [Unknown]
